FAERS Safety Report 6781300-7 (Version None)
Quarter: 2010Q2

REPORT INFORMATION
  Report Type: 
  Country: None (occurrence: None)
  Receive Date: 20100621
  Receipt Date: 20100608
  Transmission Date: 20101027
  Serious: Yes (Other)
  Sender: FDA-Public Use
  Company Number: PHHY2010AR36973

PATIENT
  Sex: Male

DRUGS (6)
  1. CLOZAPINE [Suspect]
     Indication: BIPOLAR DISORDER
     Dosage: 350 MG
     Dates: start: 20100101
  2. FOLIC ACID [Concomitant]
  3. LITHIUM CARBONATE CAP [Concomitant]
     Dosage: 300 MG, QD
  4. LOVAZA [Concomitant]
     Dosage: 1 G, QD
  5. PAROXETINE HCL [Concomitant]
     Dosage: 12.5 MG, QD
  6. LEVOTHYROXINE SODIUM [Concomitant]
     Dosage: 100 U, QD

REACTIONS (2)
  - ENURESIS [None]
  - SALIVARY HYPERSECRETION [None]
